FAERS Safety Report 24379653 (Version 1)
Quarter: 2024Q3

REPORT INFORMATION
  Report Type: Spontaneous
  Country: US (occurrence: US)
  Receive Date: 20240930
  Receipt Date: 20240930
  Transmission Date: 20241017
  Serious: Yes (Life-Threatening, Hospitalization, Other)
  Sender: PURDUE
  Company Number: US-PURDUE-USA-2024-0312198

PATIENT
  Age: 21 Year
  Sex: Male

DRUGS (1)
  1. DRONABINOL [Suspect]
     Active Substance: DRONABINOL
     Indication: Product used for unknown indication
     Dosage: UNK
     Route: 048

REACTIONS (4)
  - Acute respiratory distress syndrome [Unknown]
  - Condition aggravated [Unknown]
  - Parainfluenzae virus infection [Unknown]
  - Drug abuse [Unknown]
